FAERS Safety Report 4662998-6 (Version None)
Quarter: 2005Q2

REPORT INFORMATION
  Report Type: 
  Country: None (occurrence: None)
  Receive Date: 20050511
  Receipt Date: 20040618
  Transmission Date: 20051028
  Serious: Yes (Other)
  Sender: FDA-Public Use
  Company Number: ZONI001453

PATIENT
  Age: 21 Year
  Sex: Male

DRUGS (3)
  1. ZONEGRAN [Suspect]
     Indication: GRAND MAL CONVULSION
     Dosage: 100 MG DAILY, 1 IN 1 D, ORAL
     Route: 048
     Dates: start: 20040610, end: 20040601
  2. LAMICTAL [Concomitant]
  3. VALPROIC ACID [Concomitant]

REACTIONS (2)
  - CONVULSION [None]
  - PHYSICAL ASSAULT [None]
